FAERS Safety Report 7484431-1 (Version None)
Quarter: 2011Q1

REPORT INFORMATION
  Report Type: 
  Country: None (occurrence: None)
  Receive Date: 20110309
  Receipt Date: 20110210
  Transmission Date: 20110831
  Serious: No
  Sender: FDA-Public Use
  Company Number: 2011SP006560

PATIENT
  Age: 34 Year
  Sex: Male

DRUGS (8)
  1. SAPHRIS [Suspect]
     Indication: SCHIZOPHRENIA
     Dosage: 10 MG; QD; PO, 10 MG; QD; PO, 10 MG; QD; PO, 10 MG; QD; PO
     Route: 048
     Dates: start: 20110124
  2. SAPHRIS [Suspect]
     Indication: SCHIZOPHRENIA
     Dosage: 10 MG; QD; PO, 10 MG; QD; PO, 10 MG; QD; PO, 10 MG; QD; PO
     Route: 048
     Dates: start: 20110130, end: 20110202
  3. SAPHRIS [Suspect]
     Indication: SCHIZOPHRENIA
     Dosage: 10 MG; QD; PO, 10 MG; QD; PO, 10 MG; QD; PO, 10 MG; QD; PO
     Route: 048
     Dates: start: 20110128
  4. SAPHRIS [Suspect]
     Indication: SCHIZOPHRENIA
     Dosage: 10 MG; QD; PO, 10 MG; QD; PO, 10 MG; QD; PO, 10 MG; QD; PO
     Route: 048
     Dates: start: 20110126
  5. SEROQUEL [Suspect]
     Dosage: 100 MG, 100 MG
     Dates: start: 20110202
  6. SEROQUEL [Suspect]
     Dosage: 100 MG, 100 MG
     Dates: end: 20110201
  7. GEODON [Suspect]
  8. VENLAFAXINE HYDROCHLORIDE (EFFEXOR XR) [Suspect]
     Indication: PRODUCT USED FOR UNKNOWN INDICATION
     Dosage: 225 MG

REACTIONS (12)
  - PARANOIA [None]
  - NAUSEA [None]
  - DISORIENTATION [None]
  - INCORRECT ROUTE OF DRUG ADMINISTRATION [None]
  - VOMITING [None]
  - INSOMNIA [None]
  - INAPPROPRIATE SCHEDULE OF DRUG ADMINISTRATION [None]
  - FATIGUE [None]
  - THINKING ABNORMAL [None]
  - PSYCHOMOTOR HYPERACTIVITY [None]
  - MIGRAINE [None]
  - FEELING ABNORMAL [None]
